FAERS Safety Report 17581953 (Version 1)
Quarter: 2020Q1

REPORT INFORMATION
  Report Type: Spontaneous
  Country: US (occurrence: US)
  Receive Date: 20200325
  Receipt Date: 20200325
  Transmission Date: 20200409
  Serious: No
  Sender: FDA-Public Use
  Company Number: US-TEVA-2020-US-1211106

PATIENT
  Age: 59 Year
  Sex: Female

DRUGS (6)
  1. COPAXONE [Suspect]
     Active Substance: GLATIRAMER ACETATE
     Indication: MULTIPLE SCLEROSIS
     Route: 058
     Dates: start: 20180122
  2. DALFAMPRIDINE. [Concomitant]
     Active Substance: DALFAMPRIDINE
  3. PREDNISOLONE. [Concomitant]
     Active Substance: PREDNISOLONE
  4. LRBESAR/HCTZ [Concomitant]
  5. ATORVASTATIN [Concomitant]
     Active Substance: ATORVASTATIN
  6. MELAXALONE [Concomitant]

REACTIONS (1)
  - Fall [Unknown]

NARRATIVE: CASE EVENT DATE: 202002
